FAERS Safety Report 6260378-3 (Version None)
Quarter: 2009Q3

REPORT INFORMATION
  Report Type: 
  Country: None (occurrence: None)
  Receive Date: 20090708
  Receipt Date: 20090701
  Transmission Date: 20100115
  Serious: Yes (Death)
  Sender: FDA-Public Use
  Company Number: US-WATSON-2009-05076

PATIENT
  Age: 13 Year
  Sex: Male
  Weight: 54.9 kg

DRUGS (1)
  1. METHYLPHENIDATE HYDROCHLORIDE [Suspect]
     Indication: DISTURBANCE IN ATTENTION
     Dosage: UNK
     Dates: end: 19870101

REACTIONS (2)
  - ARRHYTHMIA [None]
  - SUDDEN DEATH [None]
